FAERS Safety Report 7550187-7 (Version None)
Quarter: 2011Q2

REPORT INFORMATION
  Report Type: 
  Country: None (occurrence: None)
  Receive Date: 20110615
  Receipt Date: 20110614
  Transmission Date: 20111010
  Serious: Yes (Other)
  Sender: FDA-Public Use
  Company Number: US-UCBSA-033732

PATIENT
  Sex: Male

DRUGS (2)
  1. KEPPRA XR [Suspect]
     Route: 048
     Dates: start: 20110201
  2. KEPPRA XR [Suspect]
     Indication: CONVULSION
     Route: 048
     Dates: start: 20090201, end: 20110201

REACTIONS (2)
  - CONVULSION [None]
  - TREATMENT NONCOMPLIANCE [None]
